FAERS Safety Report 6318401-3 (Version None)
Quarter: 2009Q3

REPORT INFORMATION
  Report Type: 
  Country: None (occurrence: None)
  Receive Date: 20090821
  Receipt Date: 20090813
  Transmission Date: 20100115
  Serious: Yes (Other)
  Sender: FDA-Public Use
  Company Number: US-ELI_LILLY_AND_COMPANY-US200908003245

PATIENT
  Sex: Female

DRUGS (15)
  1. ALIMTA [Suspect]
     Dosage: UNK, UNK
     Dates: start: 20090806
  2. FOLIC ACID [Concomitant]
     Dosage: 1 MG, DAILY (1/D)
     Route: 048
  3. DEXAMETHASONE [Concomitant]
     Dosage: 4 MG, DAY BEFORE, DAY OF, AND DAY AFTER CHEMOTHERAPY EVERY 3 WEEKS
     Route: 048
  4. LEXAPRO [Concomitant]
     Dosage: 20 MG, DAILY (1/D)
     Route: 048
  5. NEURONTIN [Concomitant]
     Dosage: 300 MG, 3/D
     Route: 048
  6. LIPITOR [Concomitant]
     Dosage: 20 MG, UNK
  7. ASPIRIN [Concomitant]
     Dosage: 81 MG, UNK
  8. PLAVIX [Concomitant]
     Dosage: 75 MG, UNK
  9. NYSTATIN [Concomitant]
     Dosage: 5 ML, 4/D
     Route: 047
  10. POTASSIUM CHLORIDE [Concomitant]
     Dosage: 40 MEQ, DAILY (1/D) FOR 3 DAYS
     Route: 048
  11. PHENAZOPYRIDINE HCL TAB [Concomitant]
     Dosage: 200 MG, 3/D FOR 2 DAYS
     Route: 048
  12. CIPRO [Concomitant]
     Dosage: 500 MG, 2/D FOR 7 DAYS
     Route: 048
  13. ATENOLOL [Concomitant]
     Dosage: 50 MG, AS NEEDED
     Route: 048
  14. PHENERGAN [Concomitant]
     Dosage: 25 MG, AS NEEDED EVERY 6 HOURS
     Route: 048
  15. ATIVAN [Concomitant]
     Indication: SLEEP DISORDER
     Dosage: 0.5 MG AS NEEDED AT BEDTIME
     Route: 048

REACTIONS (4)
  - PLATELET COUNT DECREASED [None]
  - RASH MACULO-PAPULAR [None]
  - RASH PRURITIC [None]
  - WHITE BLOOD CELL COUNT INCREASED [None]
